FAERS Safety Report 8299472 (Version 2)
Quarter: 2014Q3

REPORT INFORMATION
  Report Type: Spontaneous
  Country: US (occurrence: US)
  Receive Date: 20111219
  Receipt Date: 20140801
  Transmission Date: 20150326
  Serious: Yes (Hospitalization)
  Sender: FDA-Public Use
  Company Number: US-GLAXOSMITHKLINE-A0881153A

PATIENT
  Sex: Female

DRUGS (1)
  1. AVANDIA [Suspect]
     Active Substance: ROSIGLITAZONE MALEATE
     Indication: DIABETES MELLITUS
     Dosage: 4MG PER DAY
     Route: 048
     Dates: start: 1999, end: 2007

REACTIONS (9)
  - Headache [Unknown]
  - Palpitations [Unknown]
  - Hypoaesthesia [Unknown]
  - Hypotension [Unknown]
  - VIIth nerve paralysis [Unknown]
  - Bone pain [Unknown]
  - Chest pain [Unknown]
  - VIIth nerve paralysis [Not Recovered/Not Resolved]
  - Breast neoplasm [Unknown]
